FAERS Safety Report 6037696-7 (Version None)
Quarter: 2009Q1

REPORT INFORMATION
  Report Type: 
  Country: None (occurrence: None)
  Receive Date: 20090114
  Receipt Date: 20090106
  Transmission Date: 20090719
  Serious: Yes (Other)
  Sender: FDA-Public Use
  Company Number: US-AMGEN-KDL327131

PATIENT
  Sex: Male

DRUGS (8)
  1. NEULASTA [Suspect]
     Indication: CHEMOTHERAPY
  2. AMBIEN [Concomitant]
  3. CYCLOPHOSPHAMIDE [Concomitant]
  4. PANTROPAZOLE [Concomitant]
  5. DOXORUBICIN HYDROCHLORIDE [Concomitant]
  6. VINCRISTINE [Concomitant]
  7. PREDNISONE TAB [Concomitant]
  8. RITUXIMAB [Concomitant]

REACTIONS (2)
  - THERAPEUTIC RESPONSE DECREASED [None]
  - WHITE BLOOD CELL COUNT DECREASED [None]
